FAERS Safety Report 9781125 (Version 1)
Quarter: 2013Q4

REPORT INFORMATION
  Report Type: Spontaneous
  Country: US (occurrence: None)
  Receive Date: 20131223
  Receipt Date: 20131223
  Transmission Date: 20140711
  Serious: Yes (Hospitalization)
  Sender: FDA-Public Use
  Company Number: None

PATIENT
  Age: 21 Year
  Sex: Female
  Weight: 40.82 kg

DRUGS (1)
  1. TOPIRAMATE [Suspect]
     Indication: CONVULSION
     Dosage: 1 2X DAY TWICE DAILY TAKEN BY MOUTH
     Route: 048

REACTIONS (12)
  - Asthenia [None]
  - Cough [None]
  - Migraine [None]
  - Paralysis [None]
  - Dysarthria [None]
  - Vision blurred [None]
  - Cerebrovascular accident [None]
  - Loss of consciousness [None]
  - Vasculitis [None]
  - Epilepsy [None]
  - Anaemia [None]
  - Lymphocyte count decreased [None]
